FAERS Safety Report 6543931-9 (Version None)
Quarter: 2010Q1

REPORT INFORMATION
  Report Type: 
  Country: None (occurrence: None)
  Receive Date: 20100120
  Receipt Date: 20100114
  Transmission Date: 20100710
  Serious: Yes (Life-Threatening)
  Sender: FDA-Public Use
  Company Number: GB-ELI_LILLY_AND_COMPANY-GB201001002478

PATIENT
  Age: 44 Year
  Sex: Female
  Weight: 117 kg

DRUGS (9)
  1. BYETTA [Suspect]
     Indication: DIABETES MELLITUS
     Dosage: UNK, UNKNOWN
     Route: 058
     Dates: start: 20090818
  2. ASPIRIN [Concomitant]
  3. ATORVASTATIN [Concomitant]
  4. CALCICHEW D3 [Concomitant]
  5. MIRTAZAPINE [Concomitant]
  6. RAMIPRIL [Concomitant]
  7. RANITIDINE [Concomitant]
  8. ALBUTEROL [Concomitant]
  9. SALMETEROL/FLUTICASONPROPIONAAT [Concomitant]

REACTIONS (2)
  - ACUTE MYOCARDIAL INFARCTION [None]
  - PAPILLOEDEMA [None]
